FAERS Safety Report 6631376-2 (Version None)
Quarter: 2010Q1

REPORT INFORMATION
  Report Type: 
  Country: None (occurrence: None)
  Receive Date: 20100311
  Receipt Date: 20100311
  Transmission Date: 20100710
  Serious: No
  Sender: FDA-Public Use
  Company Number: None

PATIENT
  Age: 61 Year
  Sex: Female
  Weight: 115.6 kg

DRUGS (30)
  1. TELEVANCIN 250 MG ASTELLAS [Suspect]
     Indication: CELLULITIS
     Dosage: 925 MG Q24HOURS IV BOLUS
     Route: 040
     Dates: start: 20100110, end: 20100120
  2. LEVAQUIN [Concomitant]
  3. ASPIRIN [Concomitant]
  4. BUDESONIDE [Concomitant]
  5. CALCIUM CARBONATE [Concomitant]
  6. NEXIUM [Concomitant]
  7. CONJUGATED ESTROGENS [Concomitant]
  8. FOLIC ACID [Concomitant]
  9. GABAPENTIN [Concomitant]
  10. LASIX [Concomitant]
  11. MUCINEX [Concomitant]
  12. HEPARIN [Concomitant]
  13. INSULIN [Concomitant]
  14. SYNTHROID [Concomitant]
  15. MAGNESIUM OXIDE [Concomitant]
  16. REGLAN [Concomitant]
  17. METOLAZONE [Concomitant]
  18. MONTELUKAST SODIUM [Concomitant]
  19. OXYCODONE [Concomitant]
  20. PREDNISONE [Concomitant]
  21. RAMIPRIL [Concomitant]
  22. ALDACTONE [Concomitant]
  23. XOPENEX [Concomitant]
  24. CUBICIN [Concomitant]
  25. POTASSIUM CHLORIDE [Concomitant]
  26. VANCOMYCIN [Concomitant]
  27. DIAMOX SRC [Concomitant]
  28. ALBUTEROL [Concomitant]
  29. ALLOPURINOL [Concomitant]
  30. FLONASE [Concomitant]

REACTIONS (1)
  - ASTERIXIS [None]
